FAERS Safety Report 20894274 (Version 1)
Quarter: 2022Q2

REPORT INFORMATION
  Report Type: Spontaneous
  Country: US (occurrence: None)
  Receive Date: 20220527
  Receipt Date: 20220527
  Transmission Date: 20220721
  Serious: Yes (Death)
  Sender: FDA-Public Use
  Company Number: None

PATIENT
  Age: 68 Year
  Sex: Male

DRUGS (1)
  1. FONDAPARINUX [Suspect]
     Active Substance: FONDAPARINUX
     Dosage: 5 DAILY SUBCUTANEOUS?
     Route: 058
     Dates: start: 20220527

REACTIONS (1)
  - Death [None]

NARRATIVE: CASE EVENT DATE: 20220527
